FAERS Safety Report 4983025-7 (Version None)
Quarter: 2006Q2

REPORT INFORMATION
  Report Type: 
  Country: None (occurrence: None)
  Receive Date: 20060420
  Receipt Date: 20060411
  Transmission Date: 20061013
  Serious: Yes (Hospitalization, Disabling, Other)
  Sender: FDA-Public Use
  Company Number: 2006050343

PATIENT
  Sex: Male
  Weight: 68.0396 kg

DRUGS (13)
  1. NITROGLYCERIN [Suspect]
     Indication: CHEST PAIN
     Dosage: SUBLINGUAL
  2. PROCARDIA XL [Suspect]
     Indication: ILL-DEFINED DISORDER
     Dosage: 30 MG
     Dates: end: 20050101
  3. IMDUR [Concomitant]
  4. TENORMIN [Concomitant]
  5. LOPID [Concomitant]
  6. PLAVIX [Concomitant]
  7. LASIX (FURSOSEMIDE) [Concomitant]
  8. SPIRONOLACTONE [Concomitant]
  9. HYDROXYZINE [Concomitant]
  10. DARVOCET-N 100 [Concomitant]
  11. ACETYLSALICYLIC ACID (ACETYLSALICYCLIC ACID) [Concomitant]
  12. COMBIVENT [Concomitant]
  13. ADVAIR (FLUTICASONE PROPIONATE, SALMETEROL XINAFAOATE) [Concomitant]

REACTIONS (22)
  - ASTHMA [None]
  - BLOOD PRESSURE DECREASED [None]
  - DIFFICULTY IN WALKING [None]
  - DIZZINESS [None]
  - DYSPHAGIA [None]
  - DYSSTASIA [None]
  - ECONOMIC PROBLEM [None]
  - ENTEROCOLITIS INFECTIOUS [None]
  - FALL [None]
  - FEMUR FRACTURE [None]
  - HIATUS HERNIA [None]
  - IMPAIRED DRIVING ABILITY [None]
  - INSOMNIA [None]
  - MALAISE [None]
  - MEMORY IMPAIRMENT [None]
  - NEUROPATHY PERIPHERAL [None]
  - ORAL INTAKE REDUCED [None]
  - PAIN [None]
  - PNEUMONIA [None]
  - SENSORY DISTURBANCE [None]
  - SKULL FRACTURE [None]
  - WEIGHT INCREASED [None]
